FAERS Safety Report 14861975 (Version 1)
Quarter: 2018Q2

REPORT INFORMATION
  Report Type: Spontaneous
  Country: US (occurrence: US)
  Receive Date: 20180508
  Receipt Date: 20180508
  Transmission Date: 20180711
  Serious: Yes (Death, Hospitalization, Other)
  Sender: FDA-Public Use
  Company Number: US-MYLANLABS-2018M1029282

PATIENT
  Age: 33 Year
  Sex: Female

DRUGS (2)
  1. MAGNESIUM [Concomitant]
     Active Substance: MAGNESIUM
     Indication: PRE-ECLAMPSIA
     Route: 042
  2. LABETALOL [Suspect]
     Active Substance: LABETALOL\LABETALOL HYDROCHLORIDE
     Indication: PRE-ECLAMPSIA
     Dosage: 20MG
     Route: 042

REACTIONS (8)
  - Acute respiratory distress syndrome [Fatal]
  - Brain oedema [Fatal]
  - Seizure like phenomena [Fatal]
  - Unresponsive to stimuli [Fatal]
  - Brain injury [Fatal]
  - Brain herniation [Fatal]
  - Cyanosis [Fatal]
  - Maternal exposure during pregnancy [Fatal]
